FAERS Safety Report 14863467 (Version 1)
Quarter: 2018Q2

REPORT INFORMATION
  Report Type: Spontaneous
  Country: US (occurrence: US)
  Receive Date: 20180508
  Receipt Date: 20180508
  Transmission Date: 20180711
  Serious: Yes (Other)
  Sender: FDA-Public Use
  Company Number: US-MYLANLABS-2018M1029769

PATIENT
  Age: 76 Year
  Sex: Female
  Weight: 65 kg

DRUGS (2)
  1. LEVOTHYROXINE SODIUM TABLETS, USP [Suspect]
     Active Substance: LEVOTHYROXINE SODIUM
     Indication: HYPOTHYROIDISM
     Dosage: UNK
     Route: 048
     Dates: start: 20160612, end: 20160915
  2. LEVOTHYROXINE SODIUM TABLETS, USP [Suspect]
     Active Substance: LEVOTHYROXINE SODIUM
     Dosage: UNK
     Route: 048
     Dates: start: 20160916

REACTIONS (22)
  - Hypertension [Recovered/Resolved]
  - Hypersensitivity [Recovered/Resolved]
  - Muscle spasms [Recovering/Resolving]
  - Asthenia [Recovering/Resolving]
  - Feeling abnormal [Recovered/Resolved]
  - Pollakiuria [Recovering/Resolving]
  - Weight decreased [Recovering/Resolving]
  - Confusional state [Recovered/Resolved]
  - Loss of consciousness [Recovered/Resolved]
  - Diabetes mellitus [Not Recovered/Not Resolved]
  - Cataract [Not Recovered/Not Resolved]
  - Nasopharyngitis [Recovering/Resolving]
  - Gait disturbance [Recovered/Resolved]
  - Blood cholesterol increased [Recovering/Resolving]
  - Fall [Recovered/Resolved]
  - Expired product administered [Recovered/Resolved]
  - Dizziness [Recovering/Resolving]
  - Headache [Recovered/Resolved]
  - Seizure [Recovered/Resolved]
  - Blood thyroid stimulating hormone abnormal [Recovering/Resolving]
  - Constipation [Unknown]
  - Alopecia [Unknown]

NARRATIVE: CASE EVENT DATE: 20160612
